FAERS Safety Report 8218434-6 (Version None)
Quarter: 2012Q1

REPORT INFORMATION
  Report Type: 
  Country: None (occurrence: None)
  Receive Date: 20120319
  Receipt Date: 20120314
  Transmission Date: 20120608
  Serious: Yes (Hospitalization, Other)
  Sender: FDA-Public Use
  Company Number: US-PFIZER INC-2011152966

PATIENT
  Sex: Male

DRUGS (1)
  1. CHANTIX [Suspect]
     Indication: SMOKING CESSATION THERAPY
     Dosage: 1MG AND 0.5MG
     Dates: start: 20070827, end: 20071001

REACTIONS (6)
  - AMNESIA [None]
  - DIABETES MELLITUS [None]
  - DEPRESSION [None]
  - SUICIDE ATTEMPT [None]
  - ABNORMAL DREAMS [None]
  - ANXIETY [None]
